FAERS Safety Report 18169540 (Version 4)
Quarter: 2021Q4

REPORT INFORMATION
  Report Type: Spontaneous
  Country: JP (occurrence: JP)
  Receive Date: 20200818
  Receipt Date: 20211121
  Transmission Date: 20220303
  Serious: Yes (Hospitalization, Other)
  Sender: FDA-Public Use
  Company Number: JP-MSD-M2020-16289

PATIENT
  Age: 58 Year
  Sex: Male

DRUGS (3)
  1. KEYTRUDA [Suspect]
     Active Substance: PEMBROLIZUMAB
     Indication: Nasal sinus cancer
     Dosage: 200 MILLIGRAM, Q3W
     Route: 041
     Dates: start: 20200727
  2. FLUOROURACIL [Suspect]
     Active Substance: FLUOROURACIL
     Indication: Nasal sinus cancer
     Dosage: 1000 MILLIGRAM/SQ. METER
     Route: 041
     Dates: start: 20200727, end: 20200729
  3. CISPLATIN [Concomitant]
     Active Substance: CISPLATIN
     Indication: Nasal sinus cancer
     Dosage: 100 MILLIGRAM/SQ. METER, QD
     Route: 041
     Dates: start: 20200727, end: 20200729

REACTIONS (3)
  - Loss of consciousness [Recovered/Resolved]
  - Presyncope [Unknown]
  - Immune-mediated dermatitis [Recovered/Resolved]

NARRATIVE: CASE EVENT DATE: 20200729
